FAERS Safety Report 10059720 (Version 2)
Quarter: 2014Q2

REPORT INFORMATION
  Report Type: Report from Study
  Country: KR (occurrence: KR)
  Receive Date: 20140404
  Receipt Date: 20140410
  Transmission Date: 20141212
  Serious: Yes (Hospitalization)
  Sender: FDA-Public Use
  Company Number: PHHO2014KR004821

PATIENT
  Sex: 0

DRUGS (4)
  1. ZOLEDRONATE [Suspect]
     Indication: METASTASES TO BONE
     Dosage: 4 MG/2ML
     Dates: start: 20130420, end: 20130422
  2. ZOLEDRONATE [Suspect]
     Dosage: REDUCED BY 25 %
     Dates: start: 20130514, end: 20130514
  3. TAXOTERE [Suspect]
     Dosage: 110 MG, UNK
     Route: 042
     Dates: start: 20130420, end: 20130422
  4. TAXOTERE [Suspect]
     Dosage: UNK
     Dates: start: 20130514

REACTIONS (1)
  - Febrile neutropenia [Recovered/Resolved]
